FAERS Safety Report 5215274-7 (Version None)
Quarter: 2007Q1

REPORT INFORMATION
  Report Type: 
  Country: None (occurrence: None)
  Receive Date: 20061122
  Receipt Date: 20060112
  Transmission Date: 20070707
  Serious: Yes (Other)
  Sender: FDA-Public Use
  Company Number: HQWYE323213JAN06

PATIENT
  Age: 78 Year
  Sex: Female
  Weight: 65.83 kg

DRUGS (2)
  1. PREMARIN [Suspect]
     Indication: PRURITUS GENITAL
     Dosage: UNK, VAGINAL
     Route: 067
     Dates: start: 20051012
  2. PREMARIN [Suspect]
     Indication: VAGINAL BURNING SENSATION
     Dosage: UNK, VAGINAL
     Route: 067
     Dates: start: 20051012

REACTIONS (9)
  - ASTHENIA [None]
  - BLOOD CHOLESTEROL INCREASED [None]
  - DEMENTIA [None]
  - DIZZINESS [None]
  - HEADACHE [None]
  - HYPERTENSION [None]
  - PAIN IN EXTREMITY [None]
  - SYNCOPE [None]
  - VISUAL ACUITY REDUCED [None]
